FAERS Safety Report 24575378 (Version 1)
Quarter: 2024Q4

REPORT INFORMATION
  Report Type: Spontaneous
  Country: SE (occurrence: SE)
  Receive Date: 20241104
  Receipt Date: 20241104
  Transmission Date: 20250115
  Serious: Yes (Other)
  Sender: SANDOZ
  Company Number: None

PATIENT
  Age: 39 Year
  Sex: Male

DRUGS (4)
  1. ADALIMUMAB [Suspect]
     Active Substance: ADALIMUMAB
     Indication: Product used for unknown indication
     Dosage: UNK
     Route: 065
  2. FOLSYRA EVOLAN [Concomitant]
     Indication: Product used for unknown indication
     Route: 065
  3. METOTREXAT ACCORD [Concomitant]
     Indication: Product used for unknown indication
     Dosage: UNK
     Route: 065
  4. RYBELSUS [Concomitant]
     Active Substance: SEMAGLUTIDE
     Indication: Product used for unknown indication
     Dosage: UNK
     Route: 065

REACTIONS (1)
  - Oral dysplasia [Not Recovered/Not Resolved]

NARRATIVE: CASE EVENT DATE: 20220101
